FAERS Safety Report 18065491 (Version 1)
Quarter: 2020Q3

REPORT INFORMATION
  Report Type: Spontaneous
  Country: UM (occurrence: UM)
  Receive Date: 20200723
  Receipt Date: 20200723
  Transmission Date: 20201103
  Serious: No
  Sender: FDA-Public Use
  Company Number: None

PATIENT
  Sex: Male
  Weight: 83.01 kg

DRUGS (1)
  1. JIVI [Suspect]
     Active Substance: DAMOCTOCOG ALFA PEGOL
     Dosage: ?          OTHER DOSE:100I0U;OTHER FREQUENCY:4349 PER DOSE ;?
     Dates: start: 20200602

REACTIONS (1)
  - Oropharyngeal pain [None]
